FAERS Safety Report 6916660-7 (Version None)
Quarter: 2010Q3

REPORT INFORMATION
  Report Type: 
  Country: None (occurrence: None)
  Receive Date: 20100809
  Receipt Date: 20100809
  Transmission Date: 20110219
  Serious: No
  Sender: FDA-Public Use
  Company Number: None

PATIENT
  Age: 57 Year
  Sex: Male
  Weight: 129.2752 kg

DRUGS (1)
  1. ZICAM COLD REMEDY RAPID MELT [Suspect]
     Indication: NASOPHARYNGITIS
     Dosage: ONE TAB
     Dates: start: 20100530, end: 20100530

REACTIONS (3)
  - AGEUSIA [None]
  - ANOSMIA [None]
  - PRODUCT TASTE ABNORMAL [None]
